FAERS Safety Report 4803047-6 (Version None)
Quarter: 2005Q4

REPORT INFORMATION
  Report Type: 
  Country: None (occurrence: None)
  Receive Date: 20051019
  Receipt Date: 20051006
  Transmission Date: 20060501
  Serious: Yes (Other)
  Sender: FDA-Public Use
  Company Number: JP-JPN-A20052380

PATIENT
  Age: 52 Year
  Sex: Female
  Weight: 50 kg

DRUGS (6)
  1. VALTREX [Suspect]
     Indication: HERPES ZOSTER
     Dosage: 1000MG PER DAY
     Route: 048
     Dates: start: 20050920, end: 20050924
  2. HALCION [Concomitant]
     Dosage: .125MG PER DAY
     Route: 048
  3. SENNOSIDE [Concomitant]
     Dosage: 6TAB PER DAY
     Route: 048
  4. ALLOPURINOL [Concomitant]
     Dosage: 1TAB PER DAY
     Route: 048
  5. MUCOSTA [Concomitant]
     Dosage: 1TAB THREE TIMES PER DAY
     Route: 048
  6. LOXONIN [Concomitant]
     Route: 048

REACTIONS (3)
  - DEPRESSED LEVEL OF CONSCIOUSNESS [None]
  - HYPOAESTHESIA [None]
  - INSOMNIA [None]
